FAERS Safety Report 9048070 (Version 2)
Quarter: 2013Q1

REPORT INFORMATION
  Report Type: Spontaneous
  Country: US (occurrence: US)
  Receive Date: 20130204
  Receipt Date: 20130305
  Transmission Date: 20140127
  Serious: No
  Sender: FDA-Public Use
  Company Number: US-AMGEN-USASP2012083480

PATIENT
  Age: 45 Year
  Sex: Male
  Weight: 114.74 kg

DRUGS (1)
  1. ENBREL [Suspect]
     Indication: ANKYLOSING SPONDYLITIS
     Dosage: 50 MG, WEEKLY
     Route: 058
     Dates: start: 20120308

REACTIONS (2)
  - Pain [Not Recovered/Not Resolved]
  - Sinusitis [Recovered/Resolved]
